FAERS Safety Report 23768672 (Version 2)
Quarter: 2024Q3

REPORT INFORMATION
  Report Type: Report from Study
  Country: US (occurrence: US)
  Receive Date: 20240422
  Receipt Date: 20240913
  Transmission Date: 20241017
  Serious: Yes (Hospitalization, Other)
  Sender: OTSUKA
  Company Number: US-OTSUKA-2023_029347

PATIENT
  Sex: Female

DRUGS (2)
  1. TOLVAPTAN [Interacting]
     Active Substance: TOLVAPTAN
     Indication: Congenital cystic kidney disease
     Dosage: UNK
     Route: 065
     Dates: start: 20210504
  2. DILTIAZEM [Interacting]
     Active Substance: DILTIAZEM
     Indication: Product used for unknown indication
     Dosage: UNK
     Route: 065

REACTIONS (8)
  - Catheterisation cardiac [Not Recovered/Not Resolved]
  - Chronic kidney disease [Not Recovered/Not Resolved]
  - Blood creatinine abnormal [Recovered/Resolved]
  - Blood magnesium decreased [Unknown]
  - Blood parathyroid hormone decreased [Unknown]
  - Weight decreased [Unknown]
  - Decreased appetite [Unknown]
  - Labelled drug-drug interaction issue [Recovered/Resolved]

NARRATIVE: CASE EVENT DATE: 20231108
